FAERS Safety Report 6306677-8 (Version None)
Quarter: 2009Q3

REPORT INFORMATION
  Report Type: 
  Country: None (occurrence: None)
  Receive Date: 20090810
  Receipt Date: 20090730
  Transmission Date: 20100115
  Serious: Yes (Disabling)
  Sender: FDA-Public Use
  Company Number: BE-1170458

PATIENT
  Age: 74 Year
  Sex: Male

DRUGS (5)
  1. AZOPT [Suspect]
     Indication: GLAUCOMA
     Dosage: 1 GTT BID OU OPHTHALMIC
     Route: 047
     Dates: start: 20080312, end: 20080716
  2. SINGULAIR [Concomitant]
  3. DUOVENT (DUOVENT) [Concomitant]
  4. ZESTRIL [Concomitant]
  5. SIMVASTATIN [Concomitant]

REACTIONS (2)
  - AGEUSIA [None]
  - DYSGEUSIA [None]
